FAERS Safety Report 22981523 (Version 2)
Quarter: 2024Q2

REPORT INFORMATION
  Report Type: Spontaneous
  Country: FR (occurrence: FR)
  Receive Date: 20230925
  Receipt Date: 20240624
  Transmission Date: 20240715
  Serious: Yes (Other)
  Sender: FDA-Public Use
  Company Number: None

PATIENT

DRUGS (3)
  1. ZANAMIVIR [Suspect]
     Active Substance: ZANAMIVIR
     Indication: Pneumonia influenzal
     Dosage: UNK
     Route: 048
     Dates: start: 20230822, end: 20230830
  2. OSELTAMIVIR [Suspect]
     Active Substance: OSELTAMIVIR
     Indication: Pneumonia influenzal
     Dosage: 75 MG, BID
     Route: 048
     Dates: start: 20230817, end: 20230821
  3. HEPARIN [Suspect]
     Active Substance: HEPARIN SODIUM
     Indication: Infection
     Dosage: UNK
     Route: 058
     Dates: start: 20230820, end: 20230825

REACTIONS (1)
  - Liver injury [Recovering/Resolving]
